FAERS Safety Report 25232864 (Version 2)
Quarter: 2025Q2

REPORT INFORMATION
  Report Type: Spontaneous
  Country: IT (occurrence: IT)
  Receive Date: 20250424
  Receipt Date: 20250429
  Transmission Date: 20250716
  Serious: Yes (Other)
  Sender: JOHNSON AND JOHNSON
  Company Number: None

PATIENT
  Age: 53 Year
  Sex: Male

DRUGS (1)
  1. STELARA [Suspect]
     Active Substance: USTEKINUMAB
     Indication: Psoriasis
     Route: 058
     Dates: start: 201302, end: 202504

REACTIONS (4)
  - Acute coronary syndrome [Recovering/Resolving]
  - Psoriasis [Not Recovered/Not Resolved]
  - Blood creatinine increased [Recovering/Resolving]
  - Troponin [Recovering/Resolving]

NARRATIVE: CASE EVENT DATE: 20250401
